FAERS Safety Report 17952788 (Version 1)
Quarter: 2020Q2

REPORT INFORMATION
  Report Type: Spontaneous
  Country: US (occurrence: US)
  Receive Date: 20200626
  Receipt Date: 20200626
  Transmission Date: 20200714
  Serious: Yes (Other)
  Sender: FDA-Public Use
  Company Number: US-BAXTER-2020BAX012775

PATIENT
  Age: 4 Month
  Weight: 5.6 kg

DRUGS (5)
  1. PANCURONIUM [Concomitant]
     Active Substance: PANCURONIUM
     Indication: ENDOTRACHEAL INTUBATION
     Route: 042
  2. VANCOMYCIN INJECTION, USP [Suspect]
     Active Substance: VANCOMYCIN
     Indication: PROPHYLAXIS
     Dosage: INFUSED DURING 60 MIN
     Route: 042
  3. HALOTHANE. [Concomitant]
     Active Substance: HALOTHANE
     Indication: INDUCTION OF ANAESTHESIA
     Route: 055
  4. NITROUS OXIDE WITH OXYGEN [Concomitant]
     Indication: INDUCTION OF ANAESTHESIA
     Route: 055
  5. ALBUMIN [Concomitant]
     Active Substance: ALBUMIN HUMAN
     Indication: BLOOD PRESSURE DECREASED
     Dosage: 5 CC/KG
     Route: 040

REACTIONS (1)
  - Hypoxia [Recovered/Resolved]
